FAERS Safety Report 4499821-9 (Version None)
Quarter: 2004Q4

REPORT INFORMATION
  Report Type: 
  Country: None (occurrence: None)
  Receive Date: 20041108
  Receipt Date: 20041027
  Transmission Date: 20050328
  Serious: Yes (Hospitalization)
  Sender: FDA-Public Use
  Company Number: 200410976BVD

PATIENT
  Age: 63 Year
  Sex: Male
  Weight: 106 kg

DRUGS (4)
  1. VARDENAFIL [Suspect]
     Indication: ERECTILE DYSFUNCTION
     Dosage: 20 MG, TOTAL DAILY, ORAL; 10 MG, TOTAL DAILY, ORAL
     Route: 048
     Dates: start: 20041007
  2. VARDENAFIL [Suspect]
     Indication: ERECTILE DYSFUNCTION
     Dosage: 20 MG, TOTAL DAILY, ORAL; 10 MG, TOTAL DAILY, ORAL
     Route: 048
     Dates: start: 20041008
  3. KARVEA [Concomitant]
  4. VOLTAREN [Concomitant]

REACTIONS (12)
  - ARRHYTHMIA [None]
  - ASTHENIA [None]
  - ATRIAL FIBRILLATION [None]
  - BRADYCARDIA [None]
  - CORONARY ARTERY STENOSIS [None]
  - DYSPNOEA [None]
  - FEELING ABNORMAL [None]
  - FEMORAL ARTERY ANEURYSM [None]
  - POST PROCEDURAL COMPLICATION [None]
  - SPEECH DISORDER [None]
  - TACHYARRHYTHMIA [None]
  - VERTIGO [None]
